FAERS Safety Report 7296288-2 (Version None)
Quarter: 2011Q1

REPORT INFORMATION
  Report Type: 
  Country: None (occurrence: None)
  Receive Date: 20110216
  Receipt Date: 20110208
  Transmission Date: 20110831
  Serious: Yes (Hospitalization)
  Sender: FDA-Public Use
  Company Number: US-AMGEN-USASP2011007689

PATIENT
  Age: 49 Year
  Sex: Female

DRUGS (1)
  1. ENBREL [Suspect]
     Indication: RHEUMATOID ARTHRITIS
     Dosage: 50 MG, QWK
     Dates: start: 19990101

REACTIONS (8)
  - PRURITUS [None]
  - SLEEP APNOEA SYNDROME [None]
  - WOUND SECRETION [None]
  - RHEUMATOID ARTHRITIS [None]
  - PAIN IN EXTREMITY [None]
  - DRUG HYPERSENSITIVITY [None]
  - JOINT DISLOCATION [None]
  - INJECTION SITE HAEMATOMA [None]
